FAERS Safety Report 6970170-X (Version None)
Quarter: 2010Q3

REPORT INFORMATION
  Report Type: 
  Country: None (occurrence: None)
  Receive Date: 20100908
  Receipt Date: 20100830
  Transmission Date: 20110219
  Serious: Yes (Life-Threatening, Hospitalization)
  Sender: FDA-Public Use
  Company Number: HR-KINGPHARMUSA00001-K201001101

PATIENT
  Age: 34 Year
  Sex: Female

DRUGS (1)
  1. TAPAZOLE [Suspect]
     Indication: HYPERTHYROIDISM

REACTIONS (8)
  - CYANOSIS [None]
  - DYSPHAGIA [None]
  - DYSPHONIA [None]
  - DYSPNOEA [None]
  - FATIGUE [None]
  - HYPOVENTILATION [None]
  - MUSCULAR WEAKNESS [None]
  - MYASTHENIA GRAVIS CRISIS [None]
